FAERS Safety Report 22139662 (Version 1)
Quarter: 2023Q1

REPORT INFORMATION
  Report Type: Spontaneous
  Country: ES (occurrence: ES)
  Receive Date: 20230327
  Receipt Date: 20230327
  Transmission Date: 20230418
  Serious: Yes (Other)
  Sender: FDA-Public Use
  Company Number: None

PATIENT
  Age: 19 Year
  Sex: Female
  Weight: 45 kg

DRUGS (4)
  1. ACETAMINOPHEN [Suspect]
     Active Substance: ACETAMINOPHEN
     Indication: Suicide attempt
     Dosage: 15 G, TOTAL (15 COMPRIMIDOS DE 1G)
     Route: 048
     Dates: start: 20220226, end: 20220226
  2. LORAZEPAM [Suspect]
     Active Substance: LORAZEPAM
     Indication: Suicide attempt
     Dosage: 20 MG, TOTAL (1864A)
     Route: 048
     Dates: start: 20220226, end: 20220226
  3. PAROXETINE [Concomitant]
     Active Substance: PAROXETINE
     Indication: Depressive symptom
     Dosage: 10 MG, QD (COMPRIMIDO)
     Route: 048
     Dates: start: 20220217
  4. LORAZEPAM [Concomitant]
     Active Substance: LORAZEPAM
     Indication: Anxiety
     Dosage: 1 MG, QD (COMPRIMIDO)
     Route: 048
     Dates: start: 20220217

REACTIONS (1)
  - Hypocoagulable state [Recovered/Resolved]

NARRATIVE: CASE EVENT DATE: 20220226
